FAERS Safety Report 13891674 (Version 3)
Quarter: 2017Q3

REPORT INFORMATION
  Report Type: Report from Study
  Country: BR (occurrence: BR)
  Receive Date: 20170822
  Receipt Date: 20170901
  Transmission Date: 20171127
  Serious: Yes (Death, Hospitalization)
  Sender: FDA-Public Use
  Company Number: PHHY2017BR099920

PATIENT
  Sex: Female
  Weight: 44 kg

DRUGS (4)
  1. ATROVENT [Concomitant]
     Active Substance: IPRATROPIUM BROMIDE
     Indication: PRODUCT USED FOR UNKNOWN INDICATION
     Route: 065
  2. BEROTEC [Concomitant]
     Active Substance: FENOTEROL HYDROBROMIDE
     Indication: PRODUCT USED FOR UNKNOWN INDICATION
     Route: 055
  3. SEEBRI BREEZHALER [Suspect]
     Active Substance: GLYCOPYRROLATE
     Indication: LUNG DISORDER
     Route: 065
  4. FORASEQ [Suspect]
     Active Substance: BUDESONIDE\FORMOTEROL FUMARATE
     Indication: LUNG DISORDER
     Route: 065

REACTIONS (8)
  - Cardiac arrest [Fatal]
  - Dyspnoea [Unknown]
  - Fall [Unknown]
  - Influenza [Unknown]
  - Respiratory failure [Fatal]
  - Femur fracture [Unknown]
  - Respiratory arrest [Fatal]
  - Product use in unapproved indication [Unknown]
